FAERS Safety Report 6526428-1 (Version None)
Quarter: 2009Q4

REPORT INFORMATION
  Report Type: 
  Country: None (occurrence: None)
  Receive Date: 20091229
  Receipt Date: 20091211
  Transmission Date: 20100525
  Serious: Yes (Hospitalization)
  Sender: FDA-Public Use
  Company Number: 002974

PATIENT
  Sex: Male

DRUGS (4)
  1. LACOSAMIDE [Suspect]
     Indication: CONVULSION
     Dosage: 50 MG BID INTRAVENOUS (NOT OTHERWISE SPECIFIED)
     Route: 042
  2. KEPPRA [Suspect]
     Indication: CONVULSION
  3. CEREBYX [Concomitant]
  4. VANCOMYCIN [Concomitant]

REACTIONS (2)
  - LIVER FUNCTION TEST ABNORMAL [None]
  - STATUS EPILEPTICUS [None]
